FAERS Safety Report 15461504 (Version 5)
Quarter: 2018Q4

REPORT INFORMATION
  Report Type: Report from Study
  Country: US (occurrence: US)
  Receive Date: 20181003
  Receipt Date: 20181109
  Transmission Date: 20190204
  Serious: Yes (Death, Hospitalization, Other)
  Sender: FDA-Public Use
  Company Number: US-GILEAD-2018-0366166

PATIENT
  Age: 80 Year
  Sex: Female

DRUGS (2)
  1. ELIQUIS [Concomitant]
     Active Substance: APIXABAN
  2. AMBRISENTAN [Suspect]
     Active Substance: AMBRISENTAN
     Indication: PRODUCT USED FOR UNKNOWN INDICATION
     Dosage: 5 MG, QD
     Route: 065
     Dates: start: 20170223

REACTIONS (10)
  - Haematoma [Unknown]
  - Exsanguination [Unknown]
  - Fall [Recovered/Resolved]
  - Fall [Recovered/Resolved]
  - Intestinal perforation [Unknown]
  - Haematoma [Not Recovered/Not Resolved]
  - Limb injury [Unknown]
  - Intentional product use issue [Not Recovered/Not Resolved]
  - Post procedural infection [Unknown]
  - Death [Fatal]

NARRATIVE: CASE EVENT DATE: 20181030
